FAERS Safety Report 15575488 (Version 2)
Quarter: 2019Q1

REPORT INFORMATION
  Report Type: Spontaneous
  Country: US (occurrence: US)
  Receive Date: 20181101
  Receipt Date: 20190128
  Transmission Date: 20190417
  Serious: No
  Sender: FDA-Public Use
  Company Number: US-SA-2018SA300292

PATIENT
  Age: 50 Year
  Sex: Female
  Weight: 87.54 kg

DRUGS (30)
  1. ESTRADIOL. [Concomitant]
     Active Substance: ESTRADIOL
     Dosage: 1 DF, BIW
     Route: 062
  2. SLOW-MAG [Concomitant]
     Active Substance: MAGNESIUM CHLORIDE
     Dosage: 1 DF, QD
     Route: 048
  3. VITAMIN D3 [Concomitant]
     Active Substance: CHOLECALCIFEROL
     Dosage: 1 DF, QD
     Route: 048
  4. ZOLPIDEM [Concomitant]
     Active Substance: ZOLPIDEM\ZOLPIDEM TARTRATE
     Dosage: 1 DF, QD
     Route: 048
  5. ZETIA [Concomitant]
     Active Substance: EZETIMIBE
     Dosage: 10 MG, QD
  6. MIRTAZAPINE. [Concomitant]
     Active Substance: MIRTAZAPINE
     Dosage: 1 DF, QD
     Route: 048
  7. POTASSIUM CHLORIDE. [Concomitant]
     Active Substance: POTASSIUM CHLORIDE
     Dosage: 1 DF, BID
     Route: 048
  8. ZOLPIDEM [Concomitant]
     Active Substance: ZOLPIDEM\ZOLPIDEM TARTRATE
     Indication: INSOMNIA
     Dosage: 1 DF, QD
     Route: 048
  9. FISH OIL [Concomitant]
     Active Substance: FISH OIL
  10. RITALIN [Concomitant]
     Active Substance: METHYLPHENIDATE HYDROCHLORIDE
     Indication: ATTENTION DEFICIT/HYPERACTIVITY DISORDER
  11. LYSINE [Concomitant]
     Active Substance: LYSINE
     Dosage: 5 DF, QD
     Route: 048
  12. PROGESTERONE. [Concomitant]
     Active Substance: PROGESTERONE
     Dosage: 1 DF, QD
     Route: 048
  13. PRALUENT [Suspect]
     Active Substance: ALIROCUMAB
     Indication: PRODUCT USED FOR UNKNOWN INDICATION
     Dosage: 150 MG, QOW
     Route: 058
     Dates: start: 20180831, end: 20180930
  14. FLUOCINONIDE. [Concomitant]
     Active Substance: FLUOCINONIDE
     Indication: RASH
     Dosage: UNK UNK, BID
     Route: 061
  15. MELATONIN [Concomitant]
     Active Substance: MELATONIN
     Dosage: 10 MG, QD
  16. METHYLPREDISOLONE [Concomitant]
     Active Substance: METHYLPREDNISOLONE
  17. LOMOTIL [LOPERAMIDE HYDROCHLORIDE] [Concomitant]
     Indication: DIARRHOEA
  18. CLONAZEPAM. [Concomitant]
     Active Substance: CLONAZEPAM
     Dosage: 1 TAB(S) ORALLY 2 TIMES A DAY, AS NEEDED -ANXIETY
     Route: 048
  19. DEXILANT [Concomitant]
     Active Substance: DEXLANSOPRAZOLE
     Indication: GASTROOESOPHAGEAL REFLUX DISEASE
     Dosage: 1 DF
     Route: 048
  20. DIPHENOXYLATE/ATROPINE [Concomitant]
     Active Substance: ATROPINE\DIPHENOXYLATE
     Dosage: 2 DFEVERY 4-6 HOURS BY ORAL ROUTE AS NEEDED FOR 10 DAYS
     Route: 048
  21. LOSARTAN. [Concomitant]
     Active Substance: LOSARTAN
     Dosage: 1 DF, QD
     Route: 048
     Dates: start: 201803
  22. RIZATRIPTAN. [Concomitant]
     Active Substance: RIZATRIPTAN
     Dosage: 1 DF, QD, AS NEEDED FOR MIGRAINE
  23. CELECOXIB. [Concomitant]
     Active Substance: CELECOXIB
     Dosage: 1 DF, BID
  24. MULTIVITAMIN [VITAMINS NOS] [Concomitant]
     Dosage: 1 DF, QD
  25. CELEBREX [Concomitant]
     Active Substance: CELECOXIB
     Indication: OSTEOARTHRITIS
     Dosage: 200 MG, BID
  26. CALCIUM + D3 [CALCIUM;COLECALCIFEROL] [Concomitant]
  27. METOPROLOL SUCCINATE. [Concomitant]
     Active Substance: METOPROLOL SUCCINATE
     Dosage: 1 DF, QD
     Route: 048
  28. AMPICILLIN [Concomitant]
     Active Substance: AMPICILLIN
     Dosage: 4 DF
  29. BUPROPION HCL [Concomitant]
     Active Substance: BUPROPION HYDROCHLORIDE
  30. EZETIMIBE. [Concomitant]
     Active Substance: EZETIMIBE
     Dosage: 1 DF, QD
     Route: 048

REACTIONS (3)
  - Rash generalised [Recovered/Resolved]
  - Pruritus generalised [Unknown]
  - Erythema [Recovered/Resolved]
